FAERS Safety Report 7971761-X (Version None)
Quarter: 2011Q4

REPORT INFORMATION
  Report Type: 
  Country: None (occurrence: None)
  Receive Date: 20111212
  Receipt Date: 20111130
  Transmission Date: 20120403
  Serious: Yes (Death, Other)
  Sender: FDA-Public Use
  Company Number: DE-ACTELION-A-CH2011-57760

PATIENT
  Age: 31 Year
  Sex: Male

DRUGS (1)
  1. VENTAVIS [Suspect]
     Indication: RESPIRATORY FAILURE
     Dosage: UNK
     Route: 055

REACTIONS (4)
  - SEPSIS [None]
  - CONGESTIVE CARDIOMYOPATHY [None]
  - NERVOUS SYSTEM DISORDER [None]
  - HYPOXIC-ISCHAEMIC ENCEPHALOPATHY [None]
